FAERS Safety Report 9403139 (Version 1)
Quarter: 2013Q3

REPORT INFORMATION
  Report Type: Spontaneous
  Country: US (occurrence: None)
  Receive Date: 20130715
  Receipt Date: 20130715
  Transmission Date: 20140515
  Serious: Yes (Disabling)
  Sender: FDA-Public Use
  Company Number: None

PATIENT
  Age: 77 Year
  Sex: Female
  Weight: 72.58 kg

DRUGS (1)
  1. RECLAST [Suspect]

REACTIONS (5)
  - Myalgia [None]
  - Pain in jaw [None]
  - Aphasia [None]
  - Fear [None]
  - Gait disturbance [None]
